FAERS Safety Report 8723319 (Version 2)
Quarter: 2012Q4

REPORT INFORMATION
  Report Type: 
  Country: GB (occurrence: GB)
  Receive Date: 20120814
  Receipt Date: 20120829
  Transmission Date: 20130627
  Serious: Yes (Other)
  Sender: FDA-Public Use
  Company Number: GB-WATSON-2012-13875

PATIENT
  Age: 33 Year
  Sex: Female
  Weight: 60 kg

DRUGS (2)
  1. LAMOTRIGINE [Suspect]
     Indication: PRODUCT USED FOR UNKNOWN INDICATION
     Dosage: 150 mg, unknown
     Route: 048
  2. CITALOPRAM [Concomitant]
     Indication: DEPRESSED MOOD
     Dosage: 20 mg, unknown
     Route: 048
     Dates: start: 20090213, end: 201007

REACTIONS (6)
  - Urticaria [Recovered/Resolved]
  - Angioedema [Recovered/Resolved]
  - Tenderness [Recovered/Resolved]
  - Deformity [Recovered/Resolved]
  - Stress [Unknown]
  - Condition aggravated [Unknown]
